FAERS Safety Report 8192664-4 (Version None)
Quarter: 2012Q1

REPORT INFORMATION
  Report Type: 
  Country: None (occurrence: None)
  Receive Date: 20120308
  Receipt Date: 20120228
  Transmission Date: 20120608
  Serious: Yes (Other)
  Sender: FDA-Public Use
  Company Number: US-BAYER-2011-123699

PATIENT
  Age: 17 Year
  Sex: Female
  Weight: 118 kg

DRUGS (15)
  1. PREDNISONE TAB [Concomitant]
     Dosage: 10 MG, UNK
     Route: 048
     Dates: start: 20050901
  2. YASMIN [Suspect]
     Dosage: UNK
     Dates: start: 20040201, end: 20051101
  3. ALBUTEROL [Concomitant]
     Dosage: UNK
     Route: 055
     Dates: start: 20050925, end: 20051101
  4. FLEXERIL [Concomitant]
     Dosage: 10 MG, UNK
     Route: 048
     Dates: start: 20051119
  5. HYDROCODONE BITARTRATE AND ACETAMINOPHEN [Concomitant]
     Dosage: 5 MG, UNK
     Route: 048
     Dates: start: 20051230
  6. PRENATAL PLUS IRON [Concomitant]
     Dosage: UNK
     Route: 048
     Dates: start: 20041023
  7. METOCLOPRAMIDE [Concomitant]
     Dosage: 10 MG, UNK
     Route: 048
     Dates: start: 20050525
  8. DOXYCYCLINE [Concomitant]
     Dosage: 100 MG, UNK
     Route: 048
     Dates: start: 20051230
  9. ULTRAM [Concomitant]
     Dosage: 50 MG, UNK
     Route: 048
     Dates: start: 20051119
  10. IBUPROFEN [Concomitant]
     Dosage: 800 MG, UNK
     Route: 048
     Dates: start: 20041004, end: 20050925
  11. RANITIDINE [Concomitant]
     Dosage: 150 MG, UNK
     Route: 048
     Dates: start: 20050620, end: 20060526
  12. PENICILLIN VK [Interacting]
     Dosage: 500 MG, UNK
     Route: 048
     Dates: start: 20041004
  13. CIPROFLOXACIN [Interacting]
     Dosage: 500 MG, UNK
     Dates: start: 20041026
  14. METRONIDAZOLE [Concomitant]
     Dosage: 250 MG, UNK
     Route: 048
     Dates: start: 20031120, end: 20051230
  15. AMOXICILLIN [Concomitant]
     Dosage: 500 MG, UNK
     Route: 048
     Dates: start: 20050118

REACTIONS (9)
  - PAIN [None]
  - EMOTIONAL DISTRESS [None]
  - ANXIETY [None]
  - PREGNANCY ON ORAL CONTRACEPTIVE [None]
  - CHOLELITHIASIS [None]
  - CHOLECYSTITIS CHRONIC [None]
  - GENERAL PHYSICAL HEALTH DETERIORATION [None]
  - PRE-ECLAMPSIA [None]
  - INJURY [None]
